FAERS Safety Report 13814747 (Version 1)
Quarter: 2017Q3

REPORT INFORMATION
  Report Type: Spontaneous
  Country: GB (occurrence: GB)
  Receive Date: 20170731
  Receipt Date: 20170731
  Transmission Date: 20171127
  Serious: Yes (Hospitalization, Disabling)
  Sender: FDA-Public Use
  Company Number: GB-PFIZER INC-1040957

PATIENT
  Age: 6 Month
  Sex: Female

DRUGS (8)
  1. IBUPROFEN. [Concomitant]
     Active Substance: IBUPROFEN
     Indication: PRODUCT USED FOR UNKNOWN INDICATION
     Dosage: UNK
  2. BIOCAL-D [Concomitant]
     Dosage: UNK
  3. ZINC. [Concomitant]
     Active Substance: ZINC
     Dosage: UNK
  4. PHENYTOIN. [Suspect]
     Active Substance: PHENYTOIN
     Indication: SEIZURE
     Dosage: 9 MG
     Route: 065
  5. PHENYTOIN. [Suspect]
     Active Substance: PHENYTOIN
     Dosage: 90MG /5ML
  6. MELATONIN [Concomitant]
     Active Substance: MELATONIN
     Indication: PRODUCT USED FOR UNKNOWN INDICATION
     Dosage: 10 MG, UNK
  7. AUGMENTIN [Suspect]
     Active Substance: AMOXICILLIN\CLAVULANATE POTASSIUM
     Indication: PRODUCT USED FOR UNKNOWN INDICATION
     Dosage: UNK
     Route: 065
     Dates: start: 19960101
  8. LAMICTAL [Suspect]
     Active Substance: LAMOTRIGINE
     Indication: SEIZURE
     Dosage: 75 MG, 2X/DAY
     Route: 048

REACTIONS (34)
  - Drug hypersensitivity [Unknown]
  - Drug ineffective [Unknown]
  - Lactose intolerance [Unknown]
  - Motor dysfunction [Unknown]
  - Abnormal faeces [Unknown]
  - Pain [Unknown]
  - Rash [Not Recovered/Not Resolved]
  - Vaginal infection [Unknown]
  - Cognitive disorder [Unknown]
  - Crying [Unknown]
  - Epilepsy [Unknown]
  - Tremor [Unknown]
  - Constipation [Unknown]
  - Aphasia [Unknown]
  - Cortical dysplasia [Unknown]
  - Peripheral coldness [Unknown]
  - Pharyngeal oedema [Not Recovered/Not Resolved]
  - Upper respiratory tract infection [Unknown]
  - Epistaxis [Unknown]
  - Incontinence [Unknown]
  - Rash [Unknown]
  - Upper limb fracture [Unknown]
  - Body temperature decreased [Unknown]
  - Impaired self-care [Unknown]
  - Seizure [Unknown]
  - Vomiting projectile [Unknown]
  - Dyspnoea [Unknown]
  - Candida infection [Not Recovered/Not Resolved]
  - Diarrhoea [Unknown]
  - Malaise [Unknown]
  - Haematochezia [Unknown]
  - Brain injury [Not Recovered/Not Resolved]
  - Autism spectrum disorder [Not Recovered/Not Resolved]
  - Urinary retention [Not Recovered/Not Resolved]

NARRATIVE: CASE EVENT DATE: 19960106
